FAERS Safety Report 23231136 (Version 1)
Quarter: 2023Q4

REPORT INFORMATION
  Report Type: Report from Study
  Country: CN (occurrence: CN)
  Receive Date: 20231127
  Receipt Date: 20231127
  Transmission Date: 20240109
  Serious: Yes (Other)
  Sender: FDA-Public Use
  Company Number: CN-SUN PHARMACEUTICAL INDUSTRIES LTD-2023R1-420413

PATIENT
  Age: 12 Year
  Sex: Male
  Weight: 62 kg

DRUGS (6)
  1. FUROSEMIDE [Suspect]
     Active Substance: FUROSEMIDE
     Indication: Dilated cardiomyopathy
     Dosage: UNK
     Route: 065
  2. METOPROLOL [Suspect]
     Active Substance: METOPROLOL
     Indication: Dilated cardiomyopathy
     Dosage: UNK
     Route: 065
  3. SPIRONOLACTONE [Suspect]
     Active Substance: SPIRONOLACTONE
     Indication: Dilated cardiomyopathy
     Dosage: UNK
     Route: 065
  4. ALLISARTAN ISOPROXIL [Suspect]
     Active Substance: ALLISARTAN ISOPROXIL
     Indication: Dilated cardiomyopathy
     Dosage: UNK
     Route: 065
  5. UNSPECIFIED INGREDIENT [Suspect]
     Active Substance: UNSPECIFIED INGREDIENT
     Indication: Dilated cardiomyopathy
     Dosage: UNK
     Route: 065
  6. DOPAMINE [Suspect]
     Active Substance: DOPAMINE HYDROCHLORIDE
     Indication: Dilated cardiomyopathy
     Dosage: UNK
     Route: 065

REACTIONS (1)
  - Condition aggravated [Unknown]
